FAERS Safety Report 22051549 (Version 4)
Quarter: 2023Q2

REPORT INFORMATION
  Report Type: Spontaneous
  Country: US (occurrence: US)
  Receive Date: 20230301
  Receipt Date: 20230503
  Transmission Date: 20230722
  Serious: Yes (Hospitalization, Other)
  Sender: FDA-Public Use
  Company Number: US-BRISTOL-MYERS SQUIBB COMPANY-2023-019683

PATIENT
  Age: 75 Year
  Sex: Male

DRUGS (2)
  1. LENALIDOMIDE [Suspect]
     Active Substance: LENALIDOMIDE
     Indication: Gallbladder cancer
     Dosage: FREQ: TAKE 1 CAPSULE BY MOUTH DAILY ON DAYS 1-14 OF EACH 21-DAY CYCLE (2 WEEKS ON, THEN 1 WEEK OFF)
     Route: 048
     Dates: start: 20230118
  2. LENALIDOMIDE [Suspect]
     Active Substance: LENALIDOMIDE
     Dates: start: 20230208

REACTIONS (12)
  - Fall [Recovered/Resolved]
  - Dehydration [Recovered/Resolved]
  - Cystitis [Unknown]
  - Abscess [Unknown]
  - Decubitus ulcer [Unknown]
  - Off label use [Unknown]
  - Loss of consciousness [Unknown]
  - Gait inability [Unknown]
  - Diarrhoea [Not Recovered/Not Resolved]
  - Wound [Not Recovered/Not Resolved]
  - Syncope [Not Recovered/Not Resolved]
  - Joint injury [Not Recovered/Not Resolved]
